FAERS Safety Report 21309198 (Version 1)
Quarter: 2022Q3

REPORT INFORMATION
  Report Type: Spontaneous
  Country: US (occurrence: US)
  Receive Date: 20220908
  Receipt Date: 20220908
  Transmission Date: 20221027
  Serious: No
  Sender: FDA-Public Use
  Company Number: US-009507513-2208USA008552

PATIENT
  Sex: Male

DRUGS (1)
  1. PIFELTRO [Suspect]
     Active Substance: DORAVIRINE
     Dosage: 100 MILLIGRAM, DAILY
     Route: 048

REACTIONS (2)
  - Product dose omission issue [Unknown]
  - Inability to afford medication [Unknown]

NARRATIVE: CASE EVENT DATE: 20220820
